FAERS Safety Report 11349447 (Version 1)
Quarter: 2015Q3

REPORT INFORMATION
  Report Type: Spontaneous
  Country: US (occurrence: None)
  Receive Date: 20150805
  Receipt Date: 20150805
  Transmission Date: 20151125
  Serious: No
  Sender: FDA-Public Use
  Company Number: None

PATIENT
  Age: 61 Year
  Sex: Male

DRUGS (17)
  1. COLISTIMETHATE [Suspect]
     Active Substance: COLISTIMETHATE SODIUM
     Indication: PNEUMONIA
     Route: 042
     Dates: start: 20141215, end: 20141219
  2. ENOXAPARIN [Concomitant]
     Active Substance: ENOXAPARIN
  3. IPRATROPIUM [Concomitant]
     Active Substance: IPRATROPIUM
  4. AMLODIPINE [Concomitant]
     Active Substance: AMLODIPINE BESYLATE
  5. VANCOMYCIN [Concomitant]
     Active Substance: VANCOMYCIN
  6. BUSPIRONE [Concomitant]
     Active Substance: BUSPIRONE HYDROCHLORIDE
  7. ACETAMINOPHEN. [Concomitant]
     Active Substance: ACETAMINOPHEN
  8. GABAPENTIN. [Concomitant]
     Active Substance: GABAPENTIN
  9. SENNA [Concomitant]
     Active Substance: SENNA LEAF\SENNOSIDES\SENNOSIDES A AND B
  10. LACOSAMIDE [Concomitant]
     Active Substance: LACOSAMIDE
  11. MAGNESIUM OXIDE. [Concomitant]
     Active Substance: MAGNESIUM OXIDE
  12. CLONAZEPAM. [Concomitant]
     Active Substance: CLONAZEPAM
  13. OXYCODONE [Concomitant]
     Active Substance: OXYCODONE
  14. ALBUTEROL. [Concomitant]
     Active Substance: ALBUTEROL
  15. COLISTIMETHATE [Concomitant]
     Active Substance: COLISTIMETHATE SODIUM
  16. DOCUSATE [Concomitant]
     Active Substance: DOCUSATE
  17. HYDROCHLOROTHIAZIDE. [Concomitant]
     Active Substance: HYDROCHLOROTHIAZIDE

REACTIONS (2)
  - Acute kidney injury [None]
  - Hyperkalaemia [None]

NARRATIVE: CASE EVENT DATE: 20141219
